FAERS Safety Report 8549721-X (Version None)
Quarter: 2012Q3

REPORT INFORMATION
  Report Type: 
  Country: None (occurrence: None)
  Receive Date: 20120730
  Receipt Date: 20120723
  Transmission Date: 20120928
  Serious: Yes (Hospitalization)
  Sender: FDA-Public Use
  Company Number: US-009507513-1207USA010183

PATIENT

DRUGS (5)
  1. QVAR 40 [Concomitant]
  2. IRBESARTAN [Concomitant]
  3. ENALAPRIL MALEATE [Suspect]
     Dosage: 20 MG, QD
     Route: 048
  4. JANUVIA [Suspect]
     Dosage: 100 MG, QD
     Route: 048
  5. METFORMIN HYDROCHLORIDE [Concomitant]

REACTIONS (1)
  - LEUKOCYTOCLASTIC VASCULITIS [None]
